FAERS Safety Report 8140519 (Version 3)
Quarter: 2012Q4

REPORT INFORMATION
  Report Type: 
  Country: GB (occurrence: GB)
  Receive Date: 20110916
  Receipt Date: 20121204
  Transmission Date: 20130627
  Serious: No
  Sender: FDA-Public Use
  Company Number: GB-MERCK-1109GBR00055

PATIENT
  Age: 24 Year
  Sex: Female

DRUGS (4)
  1. ISENTRESS [Suspect]
     Indication: HIV INFECTION
     Route: 048
  2. TENOFOVIR [Concomitant]
     Route: 048
  3. ATAZANAVIR [Concomitant]
     Route: 048
  4. ZIDOVUDINE [Concomitant]
     Route: 042

REACTIONS (1)
  - Maternal exposure during pregnancy [Recovered/Resolved]
